FAERS Safety Report 11183240 (Version 1)
Quarter: 2015Q2

REPORT INFORMATION
  Report Type: Spontaneous
  Country: TW (occurrence: TW)
  Receive Date: 20150611
  Receipt Date: 20150611
  Transmission Date: 20150821
  Serious: Yes (Life-Threatening, Hospitalization)
  Sender: FDA-Public Use
  Company Number: PHHY2015TW066623

PATIENT
  Age: 19 Year
  Sex: Male

DRUGS (1)
  1. BROMOCRIPTINE [Suspect]
     Active Substance: BROMOCRIPTINE
     Indication: PRODUCT USED FOR UNKNOWN INDICATION
     Dosage: 5 MG, TID
     Route: 065

REACTIONS (12)
  - Dysphagia [Recovering/Resolving]
  - Somnolence [Recovering/Resolving]
  - Sputum increased [Recovering/Resolving]
  - Night sweats [Recovering/Resolving]
  - Pulmonary oedema [Recovering/Resolving]
  - PO2 decreased [Recovering/Resolving]
  - Musculoskeletal stiffness [Recovering/Resolving]
  - Dysarthria [Recovering/Resolving]
  - Body temperature decreased [Recovered/Resolved]
  - Pneumonia aspiration [Recovering/Resolving]
  - Respiratory distress [Recovering/Resolving]
  - Tremor [Recovering/Resolving]
